FAERS Safety Report 10421018 (Version 1)
Quarter: 2014Q3

REPORT INFORMATION
  Report Type: Spontaneous
  Country: US (occurrence: None)
  Receive Date: 20140722
  Receipt Date: 20140722
  Transmission Date: 20150326
  Serious: Yes (Other)
  Sender: FDA-Public Use
  Company Number: 163-10004-14061678

PATIENT
  Age: 77 Year
  Sex: Female

DRUGS (1)
  1. OTEZLA [Suspect]
     Active Substance: APREMILAST
     Indication: PRODUCT USED FOR UNKNOWN INDICATION
     Dosage: TITRATION DOSE, UNK

REACTIONS (7)
  - Pallor [None]
  - Ear pruritus [None]
  - Lip dry [None]
  - Eye swelling [None]
  - Bronchitis [None]
  - Swelling face [None]
  - Anxiety [None]
